FAERS Safety Report 4847592-6 (Version None)
Quarter: 2005Q4

REPORT INFORMATION
  Report Type: 
  Country: None (occurrence: None)
  Receive Date: 20051205
  Receipt Date: 20051128
  Transmission Date: 20060501
  Serious: Yes (Disabling)
  Sender: FDA-Public Use
  Company Number: USA-2005-0021870

PATIENT
  Age: 64 Year
  Sex: Male

DRUGS (1)
  1. CEFDITOREN PIVOXIL (SIMILAR TO NDA 21-222)(CEFDITOREN PIVOXIL) OTHER [Suspect]
     Indication: CHRONIC OBSTRUCTIVE PULMONARY DISEASE
     Dosage: 100 MG, TID, ORAL
     Route: 048
     Dates: start: 20050602, end: 20050603

REACTIONS (8)
  - ASTHENIA [None]
  - ASTHMA [None]
  - DISCOMFORT [None]
  - FATIGUE [None]
  - FEELING HOT [None]
  - HYPERHIDROSIS [None]
  - TONGUE COATED [None]
  - TONGUE PARALYSIS [None]
